FAERS Safety Report 8987670 (Version 2)
Quarter: 2013Q1

REPORT INFORMATION
  Report Type: Spontaneous
  Country: US (occurrence: US)
  Receive Date: 20121227
  Receipt Date: 20130122
  Transmission Date: 20140127
  Serious: Yes (Death)
  Sender: FDA-Public Use
  Company Number: US-TEVA-377660USA

PATIENT
  Sex: Male

DRUGS (1)
  1. CICLOSPORIN [Suspect]
     Indication: RENAL FAILURE CHRONIC
     Dosage: 50 MILLIGRAM DAILY;

REACTIONS (1)
  - Renal failure [Fatal]
